FAERS Safety Report 15542831 (Version 1)
Quarter: 2018Q4

REPORT INFORMATION
  Report Type: Spontaneous
  Country: SE (occurrence: SE)
  Receive Date: 20181023
  Receipt Date: 20181023
  Transmission Date: 20190205
  Serious: Yes (Hospitalization)
  Sender: FDA-Public Use
  Company Number: PHHY2018SE134483

PATIENT
  Age: 42 Year
  Sex: Male

DRUGS (6)
  1. CEFADROXIL. [Suspect]
     Active Substance: CEFADROXIL
     Indication: APPENDICITIS PERFORATED
     Dosage: 2 G, UNK
     Route: 048
     Dates: start: 20011026, end: 20011101
  2. PANTOLOC [Concomitant]
     Active Substance: PANTOPRAZOLE SODIUM
     Indication: PRODUCT USED FOR UNKNOWN INDICATION
     Route: 065
  3. METRONIDAZOLE. [Suspect]
     Active Substance: METRONIDAZOLE
     Indication: APPENDICITIS PERFORATED
     Route: 048
     Dates: start: 20011026, end: 20011101
  4. ELYZOL [Suspect]
     Active Substance: METRONIDAZOLE
     Indication: APPENDICITIS PERFORATED
     Dosage: 1 G, UNK
     Route: 065
     Dates: start: 20011017, end: 20011026
  5. CLAFORAN [Suspect]
     Active Substance: CEFOTAXIME SODIUM
     Indication: APPENDICITIS PERFORATED
     Route: 042
     Dates: start: 20011017, end: 20011026
  6. FRAGMINE [Concomitant]
     Active Substance: DALTEPARIN SODIUM
     Indication: PRODUCT USED FOR UNKNOWN INDICATION
     Route: 065

REACTIONS (3)
  - Transaminases increased [Not Recovered/Not Resolved]
  - Gamma-glutamyltransferase increased [Not Recovered/Not Resolved]
  - Blood alkaline phosphatase increased [Not Recovered/Not Resolved]

NARRATIVE: CASE EVENT DATE: 20011024
